FAERS Safety Report 22653478 (Version 2)
Quarter: 2025Q2

REPORT INFORMATION
  Report Type: Spontaneous
  Country: AU (occurrence: AU)
  Receive Date: 20230629
  Receipt Date: 20250623
  Transmission Date: 20250716
  Serious: Yes (Death)
  Sender: ORGANON
  Company Number: AU-ORGANON-O2306AUS003322

PATIENT
  Age: 70 Year
  Sex: Female

DRUGS (7)
  1. MIRTAZAPINE [Suspect]
     Active Substance: MIRTAZAPINE
  2. CITALOPRAM HYDROBROMIDE [Suspect]
     Active Substance: CITALOPRAM HYDROBROMIDE
  3. AMITRIPTYLINE [Suspect]
     Active Substance: AMITRIPTYLINE
  4. CHLORPROMAZINE HYDROCHLORIDE [Suspect]
     Active Substance: CHLORPROMAZINE HYDROCHLORIDE
  5. CODEINE [Suspect]
     Active Substance: CODEINE
  6. NITRAZEPAM [Suspect]
     Active Substance: NITRAZEPAM
  7. TAPENTADOL [Suspect]
     Active Substance: TAPENTADOL

REACTIONS (1)
  - Toxicity to various agents [Fatal]
